FAERS Safety Report 16890344 (Version 1)
Quarter: 2019Q4

REPORT INFORMATION
  Report Type: Spontaneous
  Country: KR (occurrence: KR)
  Receive Date: 20191007
  Receipt Date: 20191007
  Transmission Date: 20200122
  Serious: Yes (Other)
  Sender: FDA-Public Use
  Company Number: KR-VIRTUS PHARMACEUTICALS, LLC-2019VTS00060

PATIENT
  Age: 60 Year
  Sex: Female

DRUGS (3)
  1. DAPSONE. [Suspect]
     Active Substance: DAPSONE
     Route: 065
  2. HERBAL REMEDY [Concomitant]
     Indication: DRUG ERUPTION
     Route: 065
  3. ZALTOPROFEN [Suspect]
     Active Substance: ZALTOPROFEN
     Route: 065

REACTIONS (1)
  - Pustular psoriasis [Recovering/Resolving]
